FAERS Safety Report 8259117-6 (Version None)
Quarter: 2012Q2

REPORT INFORMATION
  Report Type: 
  Country: None (occurrence: None)
  Receive Date: 20120404
  Receipt Date: 20120327
  Transmission Date: 20120825
  Serious: Yes (Other)
  Sender: FDA-Public Use
  Company Number: JP-ASTRAZENECA-2012SE17184

PATIENT
  Age: 69 Year
  Sex: Male

DRUGS (6)
  1. VENILON [Concomitant]
  2. RABEPRAZOLE SODIUM [Concomitant]
  3. MEROPENEM [Suspect]
     Route: 042
  4. LIPACREON [Concomitant]
  5. MEROPENEM [Suspect]
     Indication: CHOLANGITIS
     Route: 042
     Dates: start: 20120220, end: 20120227
  6. MEROPENEM [Suspect]
     Route: 042

REACTIONS (1)
  - RENAL FAILURE [None]
